FAERS Safety Report 8262876-X (Version None)
Quarter: 2012Q2

REPORT INFORMATION
  Report Type: 
  Country: None (occurrence: None)
  Receive Date: 20120405
  Receipt Date: 20120330
  Transmission Date: 20120825
  Serious: Yes (Other)
  Sender: FDA-Public Use
  Company Number: US-GLAXOSMITHKLINE-A0971639A

PATIENT
  Age: 76 Year
  Sex: Male

DRUGS (7)
  1. ADVAIR DISKUS 100/50 [Suspect]
     Indication: CHRONIC OBSTRUCTIVE PULMONARY DISEASE
     Dosage: 1PUFF TWICE PER DAY
     Route: 055
  2. FELODIPINE [Concomitant]
  3. WATER PILL [Concomitant]
  4. LOVAZA [Concomitant]
  5. LISINOPRIL [Concomitant]
  6. CALCIUM CARBONATE [Concomitant]
  7. ASPIRIN [Concomitant]

REACTIONS (2)
  - MACULAR DEGENERATION [None]
  - GLAUCOMA [None]
